FAERS Safety Report 8504886-0 (Version None)
Quarter: 2012Q3

REPORT INFORMATION
  Report Type: 
  Country: None (occurrence: None)
  Receive Date: 20120712
  Receipt Date: 20120706
  Transmission Date: 20120928
  Serious: Yes (Hospitalization, Other)
  Sender: FDA-Public Use
  Company Number: PHHY2012BR059050

PATIENT
  Sex: Female
  Weight: 85 kg

DRUGS (5)
  1. OMEPRAZOLE [Concomitant]
     Indication: PROPHYLAXIS
     Dosage: 1 DF, DAILY
     Route: 048
  2. DIAMICRON [Concomitant]
     Indication: DIABETES MELLITUS
     Dosage: 30 MG, QD
     Route: 048
  3. METFORMIN HCL [Suspect]
     Indication: DIABETES MELLITUS
     Dosage: 2 DF (ONE TABLET IN THE MORNING AND THE OTHER AT NIGHT),
     Route: 048
  4. CITALOPRAM HYDROBROMIDE [Concomitant]
     Indication: DEPRESSION
     Dosage: 1 DF, DAILY
     Route: 048
  5. AMLODOPINE BESYLATE AND VALSARTAN [Suspect]
     Indication: HYPERTENSION
     Dosage: 1 DF (160 MG VALSAR AND 5 MG AMLO), DAILY
     Route: 048

REACTIONS (4)
  - TENDON RUPTURE [None]
  - CATARACT [None]
  - VISUAL ACUITY REDUCED [None]
  - RESPIRATORY ARREST [None]
